FAERS Safety Report 8601125-7 (Version None)
Quarter: 2012Q2

REPORT INFORMATION
  Report Type: 
  Country: None (occurrence: None)
  Receive Date: 20120423
  Receipt Date: 20100414
  Transmission Date: 20120825
  Serious: Yes (Other)
  Sender: FDA-Public Use
  Company Number: PHEH2010US03037

PATIENT
  Age: 51 Year
  Sex: Female

DRUGS (1)
  1. FEMARA [Suspect]
     Dosage: 2.5 MG, QD, ORAL
     Route: 048
     Dates: start: 20090601, end: 20100301

REACTIONS (2)
  - PLEURAL EFFUSION [None]
  - DRAIN REMOVAL [None]
